FAERS Safety Report 5897941-5 (Version None)
Quarter: 2008Q3

REPORT INFORMATION
  Report Type: 
  Country: None (occurrence: None)
  Receive Date: 20080925
  Receipt Date: 20080919
  Transmission Date: 20090109
  Serious: Yes (Hospitalization)
  Sender: FDA-Public Use
  Company Number: A0747389A

PATIENT
  Age: 40 Year
  Sex: Female
  Weight: 120.5 kg

DRUGS (9)
  1. AVANDIA [Suspect]
     Dosage: 4MG PER DAY
     Route: 065
     Dates: start: 20050728, end: 20051207
  2. AMARYL [Concomitant]
     Dates: start: 20050728, end: 20051026
  3. PREDNISONE [Concomitant]
  4. LISINOPRIL [Concomitant]
  5. PRAVACHOL [Concomitant]
  6. LANTUS [Concomitant]
  7. PROTONIX [Concomitant]
  8. ADVAIR DISKUS 100/50 [Concomitant]
  9. METFORMIN HCL [Concomitant]

REACTIONS (2)
  - MYOCARDIAL INFARCTION [None]
  - MYOCARDIAL ISCHAEMIA [None]
